FAERS Safety Report 8384714 (Version 3)
Quarter: 2013Q2

REPORT INFORMATION
  Report Type: Spontaneous
  Country: US (occurrence: None)
  Receive Date: 20111221
  Receipt Date: 20121227
  Transmission Date: 20140414
  Serious: Yes (Other)
  Sender: FDA-Public Use
  Company Number: PHHY2010US08295

PATIENT
  Age: 4 Year
  Sex: Male

DRUGS (3)
  1. DEFERASIROX [Suspect]
     Indication: IRON OVERLOAD
     Route: 048
  2. DEFERASIROX [Suspect]
     Indication: HAEMOCHROMATOSIS
     Route: 048
  3. DEFERASIROX [Suspect]
     Route: 048

REACTIONS (7)
  - ABDOMINAL PAIN [None]
  - VOMITING [None]
  - HAEMOGLOBIN DECREASED [None]
  - DECREASED APPETITE [None]
  - HEPATIC ENZYME INCREASED [None]
  - LIVER DISORDER [None]
  - NAUSEA [None]
